FAERS Safety Report 8119875-8 (Version None)
Quarter: 2012Q1

REPORT INFORMATION
  Report Type: 
  Country: None (occurrence: None)
  Receive Date: 20120206
  Receipt Date: 20120206
  Transmission Date: 20120608
  Serious: Yes (Other)
  Sender: FDA-Public Use
  Company Number: None

PATIENT
  Age: 67 Year
  Sex: Female
  Weight: 63.5036 kg

DRUGS (1)
  1. VENLAFAXINE [Suspect]
     Indication: HOT FLUSH
     Dosage: 1 CAP EACH MORN.
     Dates: start: 20100101, end: 20120101

REACTIONS (5)
  - TINNITUS [None]
  - CRYING [None]
  - DRUG DEPENDENCE [None]
  - HOT FLUSH [None]
  - MALAISE [None]
